FAERS Safety Report 20713403 (Version 2)
Quarter: 2022Q2

REPORT INFORMATION
  Report Type: Spontaneous
  Country: JP (occurrence: JP)
  Receive Date: 20220415
  Receipt Date: 20220623
  Transmission Date: 20220721
  Serious: No
  Sender: FDA-Public Use
  Company Number: JP-GLAXOSMITHKLINE-JP2022JPN064090

PATIENT

DRUGS (5)
  1. SOTROVIMAB [Suspect]
     Active Substance: SOTROVIMAB
     Indication: COVID-19
     Dosage: 500 MG/DAY
     Route: 042
     Dates: start: 20220406, end: 20220406
  2. CALONAL [Suspect]
     Active Substance: ACETAMINOPHEN
     Indication: Pain
     Dosage: 400 MG/DOSE, WHEN HAVING PAIN, PYREXIA
     Route: 048
     Dates: start: 20220404
  3. CALONAL [Suspect]
     Active Substance: ACETAMINOPHEN
     Indication: Pyrexia
  4. CARBOCYSTEINE [Suspect]
     Active Substance: CARBOCYSTEINE
     Indication: Productive cough
     Dosage: 1500 MG/DAY
     Route: 048
     Dates: start: 20220405
  5. DEXTROMETHORPHAN HYDROBROMIDE [Suspect]
     Active Substance: DEXTROMETHORPHAN HYDROBROMIDE
     Indication: Cough
     Dosage: 90 MG/DAY
     Route: 048
     Dates: start: 20220405

REACTIONS (2)
  - Exposure during pregnancy [Unknown]
  - Live birth [Unknown]
